FAERS Safety Report 10884449 (Version 1)
Quarter: 2015Q1

REPORT INFORMATION
  Report Type: Spontaneous
  Country: GB (occurrence: GB)
  Receive Date: 20150304
  Receipt Date: 20150304
  Transmission Date: 20150721
  Serious: Yes (Other)
  Sender: FDA-Public Use
  Company Number: GB-ASTRAZENECA-2015SE19181

PATIENT
  Age: 48 Year
  Sex: Female
  Weight: 101.6 kg

DRUGS (6)
  1. ATORVASTATIN [Concomitant]
     Active Substance: ATORVASTATIN
  2. RAMIPRIL. [Concomitant]
     Active Substance: RAMIPRIL
  3. LANTUS [Concomitant]
     Active Substance: INSULIN GLARGINE
  4. NOVORAPID [Concomitant]
     Active Substance: INSULIN ASPART
  5. FORXIGA [Suspect]
     Active Substance: DAPAGLIFLOZIN
     Indication: BLOOD GLUCOSE INCREASED
     Route: 048
  6. METFORMIN [Concomitant]
     Active Substance: METFORMIN HYDROCHLORIDE

REACTIONS (2)
  - Thirst [Not Recovered/Not Resolved]
  - Hot flush [Not Recovered/Not Resolved]
